FAERS Safety Report 5146294-9 (Version None)
Quarter: 2006Q4

REPORT INFORMATION
  Report Type: 
  Country: None (occurrence: None)
  Receive Date: 20061102
  Receipt Date: 20061019
  Transmission Date: 20070319
  Serious: Yes (Death, Hospitalization)
  Sender: FDA-Public Use
  Company Number: 2006124921

PATIENT
  Age: 62 Year
  Sex: Male
  Weight: 80 kg

DRUGS (8)
  1. ALDACTONE [Suspect]
     Dosage: 25 MG, ORAL
     Route: 048
     Dates: start: 20050101, end: 20060910
  2. PREDNISONE TAB [Suspect]
     Dosage: 10 MG, ORAL
     Route: 048
     Dates: start: 20050101, end: 20060910
  3. TRAMADOL HCL [Suspect]
     Dosage: 150 MG, ORAL
     Route: 048
     Dates: start: 20050101, end: 20060910
  4. OMEPRAZOLE [Suspect]
     Dosage: 20 MG, ORAL
     Route: 048
     Dates: start: 20050101, end: 20060910
  5. SIMVASTATIN [Suspect]
     Dosage: 40 MG, ORAL
     Route: 048
     Dates: start: 20050101, end: 20060910
  6. LENALIDOMIDE (LENALIDOMIDE) [Suspect]
     Indication: MULTIPLE MYELOMA
     Dosage: 25 MG,ORAL
     Route: 048
     Dates: start: 20060704, end: 20060910
  7. ACETYLSALICYLATE LYSINE (ACETYLSALICYLATE LYSINE) [Concomitant]
  8. FUROSEMIDE [Concomitant]

REACTIONS (12)
  - ABSCESS [None]
  - ARRHYTHMIA [None]
  - LUNG DISORDER [None]
  - MULTIPLE MYELOMA [None]
  - MYELOMA RECURRENCE [None]
  - MYOCARDIAL INFARCTION [None]
  - NEUROPATHY [None]
  - PULMONARY EMBOLISM [None]
  - PYREXIA [None]
  - RENAL FAILURE ACUTE [None]
  - SUDDEN DEATH [None]
  - THERAPY NON-RESPONDER [None]
